FAERS Safety Report 6342156-X (Version None)
Quarter: 2009Q3

REPORT INFORMATION
  Report Type: 
  Country: None (occurrence: None)
  Receive Date: 20090903
  Receipt Date: 20090903
  Transmission Date: 20100115
  Serious: No
  Sender: FDA-Public Use
  Company Number: None

PATIENT
  Sex: Female
  Weight: 52.6173 kg

DRUGS (3)
  1. ADDERALL 10 [Suspect]
     Indication: ATTENTION DEFICIT/HYPERACTIVITY DISORDER
     Dosage: 30 MG 3 TIMES DAILY ORAL
     Route: 048
     Dates: start: 20050801
  2. HYLIRA [Suspect]
     Indication: NERVOUS SYSTEM DISORDER
     Dosage: 1.0 MG 3 TIMES DAILY ORAL
     Route: 048
     Dates: start: 20050801
  3. XANAX [Suspect]

REACTIONS (3)
  - SCAR [None]
  - UNEVALUABLE EVENT [None]
  - VISUAL IMPAIRMENT [None]
